FAERS Safety Report 13705759 (Version 2)
Quarter: 2017Q4

REPORT INFORMATION
  Report Type: Spontaneous
  Country: US (occurrence: US)
  Receive Date: 20170630
  Receipt Date: 20171121
  Transmission Date: 20180320
  Serious: Yes (Hospitalization, Other)
  Sender: FDA-Public Use
  Company Number: US-SA-2017SA117373

PATIENT
  Age: 8 Year
  Sex: Female
  Weight: 25 kg

DRUGS (8)
  1. FUROSEMIDE. [Concomitant]
     Active Substance: FUROSEMIDE
     Route: 065
  2. BUDESONIDE. [Concomitant]
     Active Substance: BUDESONIDE
     Route: 065
  3. CETIRIZINE [Concomitant]
     Active Substance: CETIRIZINE HYDROCHLORIDE
     Route: 065
  4. ALBUTEROL. [Concomitant]
     Active Substance: ALBUTEROL
     Dosage: FREQUENCY: Q6 HOURS AND Q4 HOURS
     Route: 065
  5. VITAMINS NOS [Concomitant]
     Active Substance: VITAMINS
     Route: 065
  6. IRON [Concomitant]
     Active Substance: IRON
     Route: 065
  7. LUMIZYME [Suspect]
     Active Substance: ALGLUCOSIDASE ALFA
     Indication: GLYCOGEN STORAGE DISEASE TYPE II
     Route: 041
     Dates: start: 20090209
  8. GLYCOLAX [Concomitant]
     Active Substance: POLYETHYLENE GLYCOL 3350
     Route: 065

REACTIONS (8)
  - Atelectasis [Recovered/Resolved]
  - Atelectasis [Recovered/Resolved]
  - Respiratory distress [Recovered/Resolved]
  - Dyspnoea [Not Recovered/Not Resolved]
  - Cholesteatoma [Recovered/Resolved]
  - Pneumonia [Recovered/Resolved]
  - Increased upper airway secretion [Not Recovered/Not Resolved]
  - Increased viscosity of bronchial secretion [Not Recovered/Not Resolved]

NARRATIVE: CASE EVENT DATE: 20170612
